FAERS Safety Report 22049877 (Version 2)
Quarter: 2025Q2

REPORT INFORMATION
  Report Type: Spontaneous
  Country: AU (occurrence: AU)
  Receive Date: 20230301
  Receipt Date: 20250623
  Transmission Date: 20250716
  Serious: Yes (Other)
  Sender: ORGANON
  Company Number: AU-ORGANON-O2302AUS002434

PATIENT
  Sex: Female

DRUGS (1)
  1. ETONOGESTREL [Suspect]
     Active Substance: ETONOGESTREL

REACTIONS (6)
  - Staphylococcal infection [Unknown]
  - Implant site induration [Unknown]
  - Implant site pustules [Unknown]
  - Implant site scar [Unknown]
  - Complication of device removal [Unknown]
  - Product contamination [Unknown]
